FAERS Safety Report 5248114-0 (Version None)
Quarter: 2007Q1

REPORT INFORMATION
  Report Type: 
  Country: None (occurrence: None)
  Receive Date: 20070222
  Receipt Date: 20070213
  Transmission Date: 20070707
  Serious: Yes (Hospitalization)
  Sender: FDA-Public Use
  Company Number: 2007-00802

PATIENT
  Age: 68 Year
  Sex: Female

DRUGS (1)
  1. ORPHENADRINE CITRATE [Suspect]
     Indication: MYALGIA
     Dosage: 50 MG, DAILY X 2 DOSES, ORAL
     Route: 048
     Dates: start: 20060101, end: 20060101

REACTIONS (2)
  - SYNCOPE [None]
  - TORSADE DE POINTES [None]
